FAERS Safety Report 12263288 (Version 2)
Quarter: 2016Q2

REPORT INFORMATION
  Report Type: Spontaneous
  Country: US (occurrence: US)
  Receive Date: 20160413
  Receipt Date: 20160510
  Transmission Date: 20160815
  Serious: Yes (Other)
  Sender: FDA-Public Use
  Company Number: US-MYLANLABS-2016M1013934

PATIENT

DRUGS (1)
  1. THIORIDAZINE [Suspect]
     Active Substance: THIORIDAZINE
     Dosage: 100 MG, TID
     Dates: start: 2009

REACTIONS (5)
  - Palpitations [Not Recovered/Not Resolved]
  - Agitation [Recovered/Resolved]
  - Electrocardiogram QT prolonged [Not Recovered/Not Resolved]
  - Blood prolactin abnormal [Not Recovered/Not Resolved]
  - Unevaluable event [Recovered/Resolved]

NARRATIVE: CASE EVENT DATE: 2016
